FAERS Safety Report 23701717 (Version 2)
Quarter: 2024Q2

REPORT INFORMATION
  Report Type: Report from Study
  Country: PH (occurrence: PH)
  Receive Date: 20240403
  Receipt Date: 20240502
  Transmission Date: 20240716
  Serious: Yes (Other)
  Sender: FDA-Public Use
  Company Number: PH-PFIZER INC-PV202400043124

PATIENT
  Age: 51 Year
  Sex: Female

DRUGS (1)
  1. BOSUTINIB [Suspect]
     Active Substance: BOSUTINIB
     Indication: Chronic myeloid leukaemia
     Dosage: 500 MG (5 X 100 MG TABLETS)

REACTIONS (5)
  - Cytopenia [Unknown]
  - Thrombocytopenia [Unknown]
  - Anaemia [Unknown]
  - White blood cell count decreased [Recovering/Resolving]
  - Neutrophil count decreased [Recovering/Resolving]
